FAERS Safety Report 26001008 (Version 2)
Quarter: 2025Q4

REPORT INFORMATION
  Report Type: Spontaneous
  Country: EU (occurrence: EU)
  Receive Date: 20251105
  Receipt Date: 20251120
  Transmission Date: 20260118
  Serious: Yes (Life-Threatening, Hospitalization)
  Sender: JOHNSON AND JOHNSON
  Company Number: None

PATIENT
  Age: 67 Year
  Sex: Male
  Weight: 66 kg

DRUGS (4)
  1. APALUTAMIDE [Suspect]
     Active Substance: APALUTAMIDE
     Indication: Prostate cancer metastatic
     Route: 048
     Dates: start: 20251006, end: 20251010
  2. FIRMAGON [Suspect]
     Active Substance: DEGARELIX ACETATE
     Indication: Prostate cancer metastatic
     Dosage: 240 MG PUIS 80 MG
     Route: 048
     Dates: start: 20250806, end: 20251010
  3. TAMSULOSIN HYDROCHLORIDE [Concomitant]
     Active Substance: TAMSULOSIN HYDROCHLORIDE
     Indication: Prostatomegaly
     Route: 048
     Dates: start: 202504, end: 20251010
  4. ROWASA [Concomitant]
     Active Substance: MESALAMINE
     Indication: Product used for unknown indication

REACTIONS (2)
  - Febrile neutropenia [Recovered/Resolved]
  - Dermatitis bullous [Unknown]

NARRATIVE: CASE EVENT DATE: 20251007
